FAERS Safety Report 8927935 (Version 1)
Quarter: 2012Q4

REPORT INFORMATION
  Report Type: Spontaneous
  Country: US (occurrence: None)
  Receive Date: 20121126
  Receipt Date: 20121126
  Transmission Date: 20130627
  Serious: Yes (Hospitalization)
  Sender: FDA-Public Use
  Company Number: None

PATIENT
  Age: 47 Year
  Sex: Female
  Weight: 94.35 kg

DRUGS (11)
  1. QUETIAPINE [Suspect]
     Indication: DEPRESSION
     Route: 048
     Dates: start: 20120327, end: 20120328
  2. ASPIRIN [Concomitant]
  3. BUSPIRONE HCL [Concomitant]
  4. CALCIUM/VITAMIN D [Concomitant]
  5. CLONAZEPAM [Concomitant]
  6. DOCUSATE [Concomitant]
  7. HYDROXYZINE PAMOATE [Concomitant]
  8. KETOROLAC [Concomitant]
  9. MAGNESIUM SULFATE [Concomitant]
  10. METHOCARBAMOL [Concomitant]
  11. MORPHINE SULFATE [Concomitant]

REACTIONS (7)
  - Convulsion [None]
  - Hypoaesthesia [None]
  - Nausea [None]
  - Chest discomfort [None]
  - Asthenia [None]
  - Hypoaesthesia [None]
  - Headache [None]
